APPROVED DRUG PRODUCT: BUPROPION HYDROCHLORIDE
Active Ingredient: BUPROPION HYDROCHLORIDE
Strength: 150MG
Dosage Form/Route: TABLET, EXTENDED RELEASE;ORAL
Application: A202189 | Product #001 | TE Code: AB3
Applicant: WOCKHARDT LTD
Approved: Nov 21, 2012 | RLD: No | RS: No | Type: RX